FAERS Safety Report 17675071 (Version 1)
Quarter: 2020Q2

REPORT INFORMATION
  Report Type: Spontaneous
  Country: FR (occurrence: FR)
  Receive Date: 20200416
  Receipt Date: 20200416
  Transmission Date: 20200714
  Serious: Yes (Life-Threatening)
  Sender: FDA-Public Use
  Company Number: NVSC2020FR099899

PATIENT
  Age: 87 Year
  Sex: Male
  Weight: 44 kg

DRUGS (1)
  1. PIPERACILLIN SODIUM,TAZOBACTAM SODIUM [Suspect]
     Active Substance: PIPERACILLIN SODIUM\TAZOBACTAM SODIUM
     Indication: VASCULAR DEVICE INFECTION
     Dosage: 1 DF, ONCE/SINGLE
     Route: 042
     Dates: start: 20191218, end: 20191218

REACTIONS (5)
  - Respiratory distress [Recovered/Resolved]
  - Anaphylactic shock [Recovered/Resolved]
  - Acute pulmonary oedema [Recovered/Resolved]
  - Hypotension [Recovered/Resolved]
  - Use of accessory respiratory muscles [Recovered/Resolved]

NARRATIVE: CASE EVENT DATE: 20191218
